FAERS Safety Report 18722865 (Version 1)
Quarter: 2021Q1

REPORT INFORMATION
  Report Type: Report from Study
  Country: LB (occurrence: LB)
  Receive Date: 20210111
  Receipt Date: 20210111
  Transmission Date: 20210419
  Serious: Yes (Other)
  Sender: FDA-Public Use
  Company Number: LB-AUROBINDO-AUR-APL-2021-001480

PATIENT

DRUGS (4)
  1. THIOTEPA. [Suspect]
     Active Substance: THIOTEPA
     Indication: LYMPHOMA
     Dosage: 4 MILLIGRAM/KILOGRAM, ONCE A DAY ON DAY ?7 AND ON DAY ?6
     Route: 065
  2. ETOPOSIDE. [Suspect]
     Active Substance: ETOPOSIDE
     Indication: LYMPHOMA
     Dosage: 100 MILLIGRAM/SQ. METER, TWO TIMES A DAY ON DAY ?5 TO DAY ?2
     Route: 065
  3. MELPHALAN. [Suspect]
     Active Substance: MELPHALAN
     Indication: LYMPHOMA
     Dosage: 140 MILLIGRAM/SQ. METER ON DAY? 1
     Route: 065
  4. ARACYTINE [Suspect]
     Active Substance: CYTARABINE
     Indication: LYMPHOMA
     Dosage: 200 MILLIGRAM/SQ. METER, TWO TIMES A DAY ON DAY ?5 TO DAY ?2
     Route: 065

REACTIONS (2)
  - Vomiting [Unknown]
  - Escherichia infection [Unknown]
